FAERS Safety Report 11186811 (Version 3)
Quarter: 2015Q3

REPORT INFORMATION
  Report Type: Spontaneous
  Country: US (occurrence: US)
  Receive Date: 20150614
  Receipt Date: 20150904
  Transmission Date: 20151125
  Serious: No
  Sender: FDA-Public Use
  Company Number: US-ASTRAZENECA-2015SE52582

PATIENT
  Age: 27264 Day
  Sex: Female
  Weight: 72.6 kg

DRUGS (1)
  1. SYMBICORT [Suspect]
     Active Substance: BUDESONIDE\FORMOTEROL FUMARATE DIHYDRATE
     Indication: CHRONIC OBSTRUCTIVE PULMONARY DISEASE
     Dosage: 160/4.5,TWO PUFFS TWO TIMES A DAY
     Route: 055

REACTIONS (3)
  - Device malfunction [Unknown]
  - Intentional product misuse [Unknown]
  - Body height decreased [Unknown]

NARRATIVE: CASE EVENT DATE: 20150524
